FAERS Safety Report 25994435 (Version 3)
Quarter: 2025Q4

REPORT INFORMATION
  Report Type: Spontaneous
  Country: GB (occurrence: GB)
  Receive Date: 20251104
  Receipt Date: 20251226
  Transmission Date: 20260117
  Serious: Yes (Congenital Anomaly)
  Sender: ROCHE
  Company Number: GB-ROCHE-10000406315

PATIENT
  Sex: Female
  Weight: 2.90 kg

DRUGS (9)
  1. EVRYSDI [Suspect]
     Active Substance: RISDIPLAM
     Indication: Spinal muscular atrophy
     Route: 064
  2. EVRYSDI [Suspect]
     Active Substance: RISDIPLAM
     Dosage: 150MICS/KG UNTIL 2 MONTHS (THEN 200MICS/KG), ?TO INCREASE TODAY IN VIEW OF WEIGHT INCREASE (3.25KG)TO 150MICS/PER KG = 0.65ML = 0.4875MG
  3. VITAMIN D [Concomitant]
     Active Substance: VITAMIN D NOS
     Indication: Product used for unknown indication
  4. FOLIC ACID [Concomitant]
     Active Substance: FOLIC ACID
     Indication: Product used for unknown indication
     Dates: start: 20250226
  5. METOCLOPRAMIDE [Concomitant]
     Active Substance: METOCLOPRAMIDE
     Indication: Product used for unknown indication
     Dates: start: 20250226
  6. ONDANSETRON [Concomitant]
     Active Substance: ONDANSETRON
     Indication: Product used for unknown indication
     Dates: start: 20250309
  7. ONDANSETRON [Concomitant]
     Active Substance: ONDANSETRON
     Dates: start: 20250228
  8. AMOXICILLIN [Concomitant]
     Active Substance: AMOXICILLIN
     Indication: Product used for unknown indication
     Dosage: FOR 5 DAYS
     Dates: start: 20250414
  9. FUSIDIC ACID [Concomitant]
     Active Substance: FUSIDIC ACID
     Indication: Product used for unknown indication
     Dates: start: 20250414

REACTIONS (5)
  - Foetal exposure during pregnancy [Unknown]
  - Off label use [Unknown]
  - Off label use [Unknown]
  - Ventricular septal defect [Recovered/Resolved]
  - Atrial septal defect [Recovered/Resolved]

NARRATIVE: CASE EVENT DATE: 20250930
